FAERS Safety Report 4457379-4 (Version None)
Quarter: 2004Q3

REPORT INFORMATION
  Report Type: 
  Country: None (occurrence: None)
  Receive Date: 20040922
  Receipt Date: 20040908
  Transmission Date: 20050211
  Serious: Yes (Hospitalization, Other)
  Sender: FDA-Public Use
  Company Number: UAS040977677

PATIENT
  Age: 35 Year
  Sex: Female

DRUGS (3)
  1. HUMALOG [Suspect]
  2. HUMULIN N [Suspect]
     Dates: end: 20040201
  3. LANTUS [Concomitant]

REACTIONS (3)
  - BLOOD GLUCOSE FLUCTUATION [None]
  - COMA [None]
  - RENAL TRANSPLANT [None]
